FAERS Safety Report 13696795 (Version 2)
Quarter: 2017Q3

REPORT INFORMATION
  Report Type: Spontaneous
  Country: US (occurrence: US)
  Receive Date: 20170628
  Receipt Date: 20170706
  Transmission Date: 20171127
  Serious: Yes (Other)
  Sender: FDA-Public Use
  Company Number: US-APOTEX-2017AP013539

PATIENT
  Age: 48 Year
  Sex: Male

DRUGS (1)
  1. LOVASTATIN TABLETS USP [Suspect]
     Active Substance: LOVASTATIN
     Indication: PRODUCT USED FOR UNKNOWN INDICATION
     Dosage: 20 MG, BID
     Route: 065

REACTIONS (2)
  - Immune-mediated necrotising myopathy [Recovering/Resolving]
  - Dermatomyositis [Recovering/Resolving]
